FAERS Safety Report 8925538 (Version 1)
Quarter: 2012Q4

REPORT INFORMATION
  Report Type: 
  Country: US (occurrence: US)
  Receive Date: 20121126
  Receipt Date: 20121126
  Transmission Date: 20130627
  Serious: Yes (Other)
  Sender: FDA-Public Use
  Company Number: US-ASTRAZENECA-2012SE76850

PATIENT
  Age: 68 Year
  Sex: Female

DRUGS (1)
  1. SEROQUEL [Suspect]
     Indication: AGITATION
     Route: 048

REACTIONS (5)
  - Upper limb fracture [Unknown]
  - Insomnia [Unknown]
  - Pneumonia [Unknown]
  - Off label use [Unknown]
  - Drug effect decreased [Unknown]
